FAERS Safety Report 8393796 (Version 3)
Quarter: 2012Q4

REPORT INFORMATION
  Report Type: 
  Country: US (occurrence: US)
  Receive Date: 20120207
  Receipt Date: 20121115
  Transmission Date: 20130627
  Serious: No
  Sender: FDA-Public Use
  Company Number: US-PFIZER INC-2012029556

PATIENT
  Age: 52 Year
  Sex: Female
  Weight: 70.75 kg

DRUGS (12)
  1. IBUPROFEN [Concomitant]
     Indication: NECK PAIN
  2. LYRICA [Suspect]
     Indication: FIBROMYALGIA
     Dosage: 50 mg, daily
     Route: 048
  3. LYRICA [Suspect]
     Dosage: 50 mg, 2x/day
     Route: 048
     Dates: start: 20111220
  4. LYRICA [Suspect]
     Dosage: 50 mg, 3x/day
     Route: 048
     Dates: start: 20120130
  5. LYRICA [Suspect]
     Dosage: 150 mg, UNK
     Route: 048
  6. LYRICA [Suspect]
     Dosage: three capsules of 50 mg in the morning and six capsules of 50 mg at night
     Route: 048
  7. HYDROCODONE [Suspect]
     Indication: ARTHRITIS OF NECK
     Dosage: UNK
  8. HYDROCODONE [Suspect]
     Indication: NECK PAIN
  9. HYDROCODONE [Suspect]
     Indication: PROLAPSED CERVICAL DISC
  10. METOPROLOL [Concomitant]
     Indication: BLOOD PRESSURE HIGH
     Dosage: 25 mg, 1x/day
  11. CELEXA [Concomitant]
     Dosage: 40 mg, UNK
  12. IBUPROFEN [Concomitant]
     Indication: ARTHRITIS
     Dosage: UNK

REACTIONS (9)
  - Drug ineffective [Unknown]
  - Pain [Not Recovered/Not Resolved]
  - Unevaluable event [Unknown]
  - Hyperhidrosis [Not Recovered/Not Resolved]
  - Pain [Unknown]
  - Somnolence [Not Recovered/Not Resolved]
  - Dysphagia [Unknown]
  - Drug intolerance [Unknown]
  - Vomiting [Unknown]
